FAERS Safety Report 20575045 (Version 1)
Quarter: 2022Q1

REPORT INFORMATION
  Report Type: Other
  Country: DE (occurrence: None)
  Receive Date: 20220310
  Receipt Date: 20220310
  Transmission Date: 20220423
  Serious: Yes (Hospitalization)
  Sender: FDA-Public Use
  Company Number: DE-ROCHE-3043868

PATIENT
  Age: 58 Year
  Sex: Male

DRUGS (4)
  1. MYCOPHENOLATE MOFETIL [Suspect]
     Active Substance: MYCOPHENOLATE MOFETIL
     Indication: Prophylaxis
     Route: 065
  2. BASILIXIMAB [Suspect]
     Active Substance: BASILIXIMAB
     Indication: Prophylaxis
     Dosage: DAY 0 AND DAY 4 POST-TRANSPLANTATION
     Route: 065
  3. PREDNISONE [Suspect]
     Active Substance: PREDNISONE
     Indication: Prophylaxis
     Dosage: 250MG AT DAY 0, 125 MG DAY 1, 50MG DAY 2-5, 20MG DAY 6-10, THEN?15 MG/DAY
     Route: 065
  4. TACROLIMUS [Suspect]
     Active Substance: TACROLIMUS
     Indication: Prophylaxis
     Dosage: 10MG AT DAY 0, 8MG DAY 1,5.5MG DAY 2, 5MG DAY 3-4, THEN 4MG/DAY
     Route: 065

REACTIONS (3)
  - Escherichia urinary tract infection [Recovered/Resolved]
  - Acute kidney injury [Unknown]
  - COVID-19 [Recovered/Resolved]
